FAERS Safety Report 7439526-5 (Version None)
Quarter: 2011Q2

REPORT INFORMATION
  Report Type: 
  Country: None (occurrence: None)
  Receive Date: 20110427
  Receipt Date: 20110420
  Transmission Date: 20111010
  Serious: Yes (Hospitalization)
  Sender: FDA-Public Use
  Company Number: FR-PURDUE-GBR-2011-0008121

PATIENT
  Age: 44 Year
  Sex: Male

DRUGS (2)
  1. OXYCONTIN LP, COMPRIME PELLICULE A LIBERATION PROLONGEE [Suspect]
     Indication: PAIN
     Dosage: UNK
     Route: 048
     Dates: start: 20110322, end: 20110406
  2. OXYNORM, GELULE [Suspect]
     Indication: PAIN
     Dosage: UNK
     Route: 048
     Dates: start: 20110322, end: 20110406

REACTIONS (2)
  - PANCREATITIS [None]
  - SPHINCTER OF ODDI DYSFUNCTION [None]
